FAERS Safety Report 5372748-6 (Version None)
Quarter: 2007Q2

REPORT INFORMATION
  Report Type: 
  Country: None (occurrence: None)
  Receive Date: 20070621
  Receipt Date: 20060705
  Transmission Date: 20071010
  Serious: Yes (Other)
  Sender: FDA-Public Use
  Company Number: 28757

PATIENT
  Age: 86 Year
  Sex: Female

DRUGS (9)
  1. MITOMYCIN FOR INJ. [Suspect]
     Indication: BLADDER CANCER
     Dosage: 40MG IN 80CC 0.9% NACL/INTRA
     Dates: start: 20060412
  2. MITOMYCIN FOR INJ. [Suspect]
     Indication: BLADDER CANCER
     Dosage: 40MG IN 80CC 0.9% NACL/INTRA
     Dates: start: 20060419
  3. MITOMYCIN FOR INJ. [Suspect]
     Indication: BLADDER CANCER
     Dosage: 40MG IN 80CC 0.9% NACL/INTRA
     Dates: start: 20060428
  4. MITOMYCIN [Suspect]
     Indication: BLADDER CANCER
     Dosage: 40MG IN 80CC 0.9% NACL/INTRA
     Dates: start: 20060412
  5. MITOMYCIN [Suspect]
     Indication: BLADDER CANCER
     Dosage: 40MG IN 80CC 0.9% NACL/INTRA
     Dates: start: 20060419
  6. MITOMYCIN [Suspect]
     Indication: BLADDER CANCER
     Dosage: 40MG IN 80CC 0.9% NACL/INTRA
     Dates: start: 20060428
  7. COUMADIN [Concomitant]
  8. DILTIAZEM [Concomitant]
  9. ZYRTEC [Concomitant]

REACTIONS (2)
  - PRURITUS [None]
  - RASH [None]
